FAERS Safety Report 7373022-9 (Version None)
Quarter: 2011Q1

REPORT INFORMATION
  Report Type: 
  Country: None (occurrence: None)
  Receive Date: 20110324
  Receipt Date: 20110311
  Transmission Date: 20110831
  Serious: Yes (Hospitalization)
  Sender: FDA-Public Use
  Company Number: PHHO2010DE07832

PATIENT
  Sex: Male

DRUGS (4)
  1. MYFORTIC [Suspect]
     Indication: RENAL TRANSPLANT
     Dosage: 1440 MG
     Route: 048
     Dates: start: 20090714
  2. PREDNISOLONE [Suspect]
     Indication: RENAL TRANSPLANT
     Dosage: 30 MG
     Route: 048
     Dates: start: 20090715
  3. SANDIMMUNE [Suspect]
     Indication: RENAL TRANSPLANT
     Dosage: 300 MG
     Route: 048
     Dates: start: 20090714, end: 20090715
  4. NO TREATMENT RECEIVED [Suspect]
     Indication: RENAL TRANSPLANT

REACTIONS (6)
  - COMPLICATIONS OF TRANSPLANTED KIDNEY [None]
  - TUBULOINTERSTITIAL NEPHRITIS [None]
  - NAUSEA [None]
  - NEPHROPATHY TOXIC [None]
  - KIDNEY FIBROSIS [None]
  - RENAL TUBULAR DISORDER [None]
